FAERS Safety Report 14937452 (Version 2)
Quarter: 2018Q3

REPORT INFORMATION
  Report Type: Report from Study
  Country: US (occurrence: US)
  Receive Date: 20180525
  Receipt Date: 20180709
  Transmission Date: 20181010
  Serious: Yes (Other)
  Sender: FDA-Public Use
  Company Number: PHEH2018US020147

PATIENT
  Sex: Female

DRUGS (2)
  1. COSENTYX [Suspect]
     Active Substance: SECUKINUMAB
     Indication: PSORIATIC ARTHROPATHY
     Dosage: 450 MG, (300 MG IN BEGINNING OF MONTH AND 150 MG MIDDLE OF THE MONTH), OTHER
     Route: 058
  2. OTEZLA [Concomitant]
     Active Substance: APREMILAST
     Indication: PRODUCT USED FOR UNKNOWN INDICATION
     Dosage: UNK
     Route: 065

REACTIONS (4)
  - Inappropriate schedule of drug administration [Unknown]
  - Pneumonia [Unknown]
  - Inflammation [Unknown]
  - Sinusitis [Unknown]
